FAERS Safety Report 18580908 (Version 12)
Quarter: 2021Q3

REPORT INFORMATION
  Report Type: Report from Study
  Country: JP (occurrence: JP)
  Receive Date: 20201204
  Receipt Date: 20210720
  Transmission Date: 20211014
  Serious: Yes (Death, Hospitalization)
  Sender: FDA-Public Use
  Company Number: JP-ROCHE-2723564

PATIENT
  Age: 67 Year
  Sex: Male
  Weight: 64.6 kg

DRUGS (29)
  1. SENNOSIDE [Concomitant]
     Active Substance: SENNOSIDES
     Indication: CONSTIPATION
     Dates: start: 20200828
  2. MYSER CREAM [Concomitant]
     Indication: RASH
     Route: 061
     Dates: start: 20200917
  3. BAKTAR [Concomitant]
     Active Substance: SULFAMETHOXAZOLE\TRIMETHOPRIM
     Dates: start: 20201128
  4. ETOPOSIDE. [Suspect]
     Active Substance: ETOPOSIDE
     Indication: SMALL CELL LUNG CANCER EXTENSIVE STAGE
     Dosage: DATE OF MOST RECENT DOSE OF ETOPOSIDE OF 134.7 MG PRIOR TO AE/SAE ONSET: 30/OCT/2020
     Route: 042
     Dates: start: 20200826
  5. LEDERMYCINE [Concomitant]
     Indication: HYPONATRAEMIA
     Dates: start: 20201010, end: 20201117
  6. INFLUENZA VACCINE [Concomitant]
     Active Substance: INFLUENZA VIRUS VACCINE
     Dates: start: 20201117, end: 20201117
  7. YUNASUPIN [Concomitant]
     Active Substance: AMPICILLIN SODIUM\SULBACTAM SODIUM
     Indication: CONSTIPATION
     Route: 042
     Dates: start: 20201229, end: 20210102
  8. ZINC OXIDE. [Concomitant]
     Active Substance: ZINC OXIDE
     Indication: RASH
     Dates: start: 20201020, end: 20201117
  9. DICLOFENAC SODIUM. [Concomitant]
     Active Substance: DICLOFENAC SODIUM
     Indication: BACK PAIN
     Dates: start: 20201201
  10. WHITE PETROLATUM [Concomitant]
     Active Substance: PETROLATUM
     Indication: CHEILITIS
     Dates: start: 20201214
  11. ATEZOLIZUMAB. [Suspect]
     Active Substance: ATEZOLIZUMAB
     Indication: SMALL CELL LUNG CANCER EXTENSIVE STAGE
     Dosage: DATE OF MOST RECENT DOSE OF ATEZOLIZUMAB OF 1200 MG PRIOR TO SAE ONSET: 17/NOV/2020.
     Route: 042
     Dates: start: 20200826
  12. HUSTAZOL [Concomitant]
     Dates: start: 20200804
  13. CARBOCISTEINE [Concomitant]
     Active Substance: CARBOCYSTEINE
  14. FILGRASTIM [Concomitant]
     Active Substance: FILGRASTIM
     Indication: NEUTROPHIL COUNT DECREASED
  15. HUMULIN R [Concomitant]
     Active Substance: INSULIN HUMAN
     Dates: start: 20201128, end: 20201201
  16. DICLOFENAC SODIUM. [Concomitant]
     Active Substance: DICLOFENAC SODIUM
     Indication: ARTHRALGIA
  17. ZOLPIDEM TARTRATE. [Concomitant]
     Active Substance: ZOLPIDEM TARTRATE
     Indication: INSOMNIA
     Dates: start: 20201208
  18. MORPHINE HYDROCHLORIDE [Concomitant]
     Active Substance: MORPHINE HYDROCHLORIDE
     Indication: PALLIATIVE CARE
     Dates: start: 20201231
  19. CARBOPLATIN. [Suspect]
     Active Substance: CARBOPLATIN
     Indication: SMALL CELL LUNG CANCER EXTENSIVE STAGE
     Dosage: DATE OF MOST RECENT DOSE OF CARBOPLATIN 448.5 MG PRIOR TO AE/SAE ONSET: 28/OCT/2020.
     Route: 042
     Dates: start: 20200826
  20. FILGRASTIM [Concomitant]
     Active Substance: FILGRASTIM
     Indication: WHITE BLOOD CELL COUNT DECREASED
     Route: 058
     Dates: start: 20200909, end: 20201111
  21. TAKECAB [Concomitant]
     Active Substance: VONOPRAZAN FUMARATE
     Dates: start: 20201128
  22. FAMOTIDINE. [Concomitant]
     Active Substance: FAMOTIDINE
     Route: 042
     Dates: start: 20201128, end: 20201130
  23. LOXOPROFEN SODIUM [Concomitant]
     Active Substance: LOXOPROFEN SODIUM
     Indication: BACK PAIN
     Dates: start: 20201201
  24. LASIX [Concomitant]
     Active Substance: FUROSEMIDE
     Dates: start: 20201128, end: 20201201
  25. MEROPEN [Concomitant]
     Active Substance: MEROPENEM
     Route: 042
     Dates: start: 20201128, end: 20201211
  26. PLACEBO [Suspect]
     Active Substance: UNSPECIFIED INGREDIENT
     Indication: SMALL CELL LUNG CANCER EXTENSIVE STAGE
     Dosage: DATE OF MOST RECENT DOSE OF PLACEBO PRIOR TO SAE ONSET: 17/NOV/2020
     Route: 042
     Dates: start: 20200826
  27. LOXOPROFEN SODIUM [Concomitant]
     Active Substance: LOXOPROFEN SODIUM
     Indication: ARTHRALGIA
  28. LOXOPROFEN [Concomitant]
     Active Substance: LOXOPROFEN
     Indication: BACK PAIN
     Dates: start: 20201202
  29. LOXOPROFEN [Concomitant]
     Active Substance: LOXOPROFEN
     Indication: ARTHRALGIA

REACTIONS (1)
  - Interstitial lung disease [Fatal]

NARRATIVE: CASE EVENT DATE: 20201128
